FAERS Safety Report 21654946 (Version 1)
Quarter: 2022Q4

REPORT INFORMATION
  Report Type: Spontaneous
  Country: DE (occurrence: DE)
  Receive Date: 20221129
  Receipt Date: 20221129
  Transmission Date: 20230113
  Serious: Yes (Other)
  Sender: FDA-Public Use
  Company Number: DE-ROCHE-3218422

PATIENT
  Sex: Female

DRUGS (11)
  1. BENDAMUSTINE HYDROCHLORIDE [Suspect]
     Active Substance: BENDAMUSTINE HYDROCHLORIDE
     Indication: Diffuse large B-cell lymphoma
     Dosage: (THIRD LINE WITH RITUXIMAB AND POLATUZUMAB VEDOTIN)
     Route: 042
     Dates: start: 20220715, end: 20220717
  2. VINCRISTINE [Suspect]
     Active Substance: VINCRISTINE
     Indication: Diffuse large B-cell lymphoma
     Dosage: (FIRST LINE WITH RITUXIMAB), RCHOP
     Route: 065
     Dates: start: 20210208, end: 20210705
  3. DOXORUBICIN HYDROCHLORIDE [Suspect]
     Active Substance: DOXORUBICIN HYDROCHLORIDE
     Indication: Diffuse large B-cell lymphoma
     Dosage: (FIRST LINE WITH RITUXIMAB), RCHOP
     Route: 065
     Dates: start: 20210208, end: 20210705
  4. PREDNISONE [Suspect]
     Active Substance: PREDNISONE
     Indication: Diffuse large B-cell lymphoma
     Dosage: (FIRST LINE WITH RITUXIMAB), RCHOP
     Route: 065
     Dates: start: 20210208, end: 20210705
  5. POLIVY [Suspect]
     Active Substance: POLATUZUMAB VEDOTIN-PIIQ
     Indication: Diffuse large B-cell lymphoma
     Dosage: (THIRD LINE WITH RITUXIMAB AND BENDAMUSTINE HYDROCHLORIDE)
     Route: 065
     Dates: start: 20220715, end: 20220717
  6. GEMCITABINE HYDROCHLORIDE\OXALIPLATIN [Suspect]
     Active Substance: GEMCITABINE HYDROCHLORIDE\OXALIPLATIN
     Indication: Diffuse large B-cell lymphoma
     Dosage: (SECOND LINE WITH RITUXIMAB AND TAFASITAMAB CXIX)
     Route: 065
     Dates: start: 20220118, end: 20220513
  7. MABTHERA [Suspect]
     Active Substance: RITUXIMAB
     Indication: Diffuse large B-cell lymphoma
     Dosage: (FIRST LINE WITH CHOP)
     Route: 065
     Dates: start: 20210208, end: 20210705
  8. MABTHERA [Suspect]
     Active Substance: RITUXIMAB
     Dosage: (SECOND LINE WITH GEMFIBROZIL AND TAFASITAMAB CXIX)
     Route: 065
     Dates: start: 20220118, end: 20220513
  9. MABTHERA [Suspect]
     Active Substance: RITUXIMAB
     Dosage: (THIRD LINE WITH POLATUZUMAB VEDOTIN AND BENDAMUSTINE HYDROCHLORIDE)
     Route: 065
     Dates: start: 20220715, end: 20220717
  10. TAFASITAMAB-CXIX [Suspect]
     Active Substance: TAFASITAMAB-CXIX
     Indication: Diffuse large B-cell lymphoma
     Dosage: (SECOND LINE WITH RITUXIMAB AND GEMFIBROZIL)
     Route: 065
     Dates: start: 20220118, end: 20220513
  11. CYCLOPHOSPHAMIDE [Suspect]
     Active Substance: CYCLOPHOSPHAMIDE
     Indication: Diffuse large B-cell lymphoma
     Dosage: (FIRST LINE WITH RITUXIMAB), RCHOP
     Route: 065
     Dates: start: 20210208, end: 20210705

REACTIONS (2)
  - Malignant neoplasm progression [Not Recovered/Not Resolved]
  - Off label use [Unknown]

NARRATIVE: CASE EVENT DATE: 20220715
